FAERS Safety Report 4517548-1 (Version None)
Quarter: 2004Q4

REPORT INFORMATION
  Report Type: 
  Country: None (occurrence: None)
  Receive Date: 20041130
  Receipt Date: 20041115
  Transmission Date: 20050328
  Serious: Yes (Hospitalization, Disabling, Other)
  Sender: FDA-Public Use
  Company Number: US_0411108226

PATIENT
  Age: 63 Year
  Sex: Female
  Weight: 93 kg

DRUGS (3)
  1. HUMULIN R [Suspect]
     Indication: DIABETES MELLITUS
     Dates: start: 19910301
  2. HUMULIN N [Suspect]
     Indication: DIABETES MELLITUS
     Dates: start: 19910301, end: 19910101
  3. COZAAR [Concomitant]

REACTIONS (12)
  - BLINDNESS [None]
  - BLOOD GLUCOSE INCREASED [None]
  - CHEST PAIN [None]
  - CONDITION AGGRAVATED [None]
  - FUNGAL INFECTION [None]
  - HYPERTENSION [None]
  - IMPAIRED DRIVING ABILITY [None]
  - IMPAIRED WORK ABILITY [None]
  - MACULAR DEGENERATION [None]
  - SCAR [None]
  - STOMACH DISCOMFORT [None]
  - STRESS SYMPTOMS [None]
